FAERS Safety Report 21167129 (Version 1)
Quarter: 2022Q3

REPORT INFORMATION
  Report Type: Spontaneous
  Country: US (occurrence: US)
  Receive Date: 20220803
  Receipt Date: 20220803
  Transmission Date: 20221026
  Serious: No
  Sender: FDA-Public Use
  Company Number: US-ELI_LILLY_AND_COMPANY-US202207012965

PATIENT
  Age: 58 Year
  Sex: Male

DRUGS (1)
  1. BEBTELOVIMAB [Suspect]
     Active Substance: BEBTELOVIMAB
     Indication: COVID-19
     Dosage: UNK UNK, UNKNOWN
     Route: 065
     Dates: start: 20220726, end: 20220726

REACTIONS (6)
  - Paraesthesia oral [Unknown]
  - Tongue discolouration [Not Recovered/Not Resolved]
  - Tongue erythema [Recovered/Resolved]
  - Tongue dry [Recovered/Resolved]
  - Lip swelling [Recovered/Resolved]
  - Lip discolouration [Not Recovered/Not Resolved]

NARRATIVE: CASE EVENT DATE: 20220727
